FAERS Safety Report 9284968 (Version 1)
Quarter: 2013Q2

REPORT INFORMATION
  Report Type: Spontaneous
  Country: IT (occurrence: IT)
  Receive Date: 20130513
  Receipt Date: 20130513
  Transmission Date: 20140414
  Serious: Yes (Other)
  Sender: FDA-Public Use
  Company Number: PHHY2013IT045750

PATIENT
  Age: 52 Year
  Sex: Male

DRUGS (3)
  1. TOLEP [Suspect]
     Indication: EPILEPSY
     Dosage: 600 MG, DAILY
     Route: 048
     Dates: start: 20130308, end: 20130402
  2. CRESTOR [Concomitant]
     Dosage: 10 MG, UNK
     Route: 048
     Dates: start: 20130121, end: 20130330
  3. PEPTAZOL [Concomitant]
     Dosage: 40 MG, UNK

REACTIONS (2)
  - Suffocation feeling [Recovered/Resolved]
  - Rash pruritic [Recovered/Resolved]
